FAERS Safety Report 17037559 (Version 1)
Quarter: 2019Q4

REPORT INFORMATION
  Report Type: Report from Study
  Country: GB (occurrence: GB)
  Receive Date: 20191115
  Receipt Date: 20191115
  Transmission Date: 20200122
  Serious: Yes (Other)
  Sender: FDA-Public Use
  Company Number: GB-GLAXOSMITHKLINE-GB2019EME207054

PATIENT

DRUGS (1)
  1. MEPOLIZUMAB [Suspect]
     Active Substance: MEPOLIZUMAB
     Indication: ASTHMA
     Dosage: 100 MG, Z(EVERY 4 WEEKS)

REACTIONS (6)
  - Asthma [Unknown]
  - Drug ineffective [Unknown]
  - Cardiac failure [Unknown]
  - Vasculitis [Unknown]
  - Eosinophilic granulomatosis with polyangiitis [Unknown]
  - Diabetes mellitus [Unknown]
